FAERS Safety Report 25158867 (Version 1)
Quarter: 2025Q2

REPORT INFORMATION
  Report Type: Spontaneous
  Country: PT (occurrence: PT)
  Receive Date: 20250404
  Receipt Date: 20250404
  Transmission Date: 20250716
  Serious: Yes (Other)
  Sender: AUROBINDO
  Company Number: PT-INFARMED-E202503-371

PATIENT
  Age: 48 Year
  Sex: Male

DRUGS (4)
  1. ROSUVASTATIN [Suspect]
     Active Substance: ROSUVASTATIN
     Indication: Product used for unknown indication
     Dosage: 20 MILLIGRAM, ONCE A DAY (1C
     Route: 048
     Dates: start: 20250205
  2. AZILSARTAN KAMEDOXOMIL\CHLORTHALIDONE [Suspect]
     Active Substance: AZILSARTAN KAMEDOXOMIL\CHLORTHALIDONE
     Indication: Product used for unknown indication
     Dosage: 52.5 MILLIGRAM, ONCE A DAY (1CP /DAY)
     Route: 048
     Dates: start: 20250205
  3. TRULICITY [Suspect]
     Active Substance: DULAGLUTIDE
     Indication: Product used for unknown indication
     Route: 058
  4. Nebilet hct [Concomitant]
     Indication: Product used for unknown indication
     Route: 048

REACTIONS (1)
  - Haematochezia [Not Recovered/Not Resolved]
